FAERS Safety Report 5249575-3 (Version None)
Quarter: 2007Q1

REPORT INFORMATION
  Report Type: 
  Country: None (occurrence: None)
  Receive Date: 20070228
  Receipt Date: 20060309
  Transmission Date: 20070707
  Serious: No
  Sender: FDA-Public Use
  Company Number: US-GLAXOSMITHKLINE-A0597769A

PATIENT
  Sex: Female

DRUGS (1)
  1. IMITREX [Suspect]

REACTIONS (1)
  - ADVERSE EVENT [None]
